FAERS Safety Report 12801798 (Version 3)
Quarter: 2017Q3

REPORT INFORMATION
  Report Type: Spontaneous
  Country: US (occurrence: US)
  Receive Date: 20161003
  Receipt Date: 20170706
  Transmission Date: 20171127
  Serious: Yes (Hospitalization)
  Sender: FDA-Public Use
  Company Number: US-ASTRAZENECA-2016SE52804

PATIENT
  Sex: Male
  Weight: 82.6 kg

DRUGS (6)
  1. LIPITOR [Concomitant]
     Active Substance: ATORVASTATIN CALCIUM
  2. MOVANTIK [Suspect]
     Active Substance: NALOXEGOL OXALATE
     Indication: CONSTIPATION
     Route: 048
     Dates: start: 2016
  3. LYRICA [Concomitant]
     Active Substance: PREGABALIN
     Indication: PAIN
  4. NORTRIPTYLINE [Concomitant]
     Active Substance: NORTRIPTYLINE
     Indication: PAIN
  5. METOPROLOL SUCCINATE. [Concomitant]
     Active Substance: METOPROLOL SUCCINATE
     Indication: BLOOD PRESSURE INCREASED
     Dosage: WATSON
  6. OPIOIDS OXYCONTIN [Concomitant]
     Indication: PAIN

REACTIONS (8)
  - Pneumonia [Unknown]
  - Heart rate abnormal [Unknown]
  - Pneumonia aspiration [Unknown]
  - Cardiac failure [Unknown]
  - Gastrointestinal pain [Recovered/Resolved]
  - Drug ineffective [Unknown]
  - Constipation [Unknown]
  - Memory impairment [Unknown]
